FAERS Safety Report 9768895 (Version 1)
Quarter: 2013Q3

REPORT INFORMATION
  Report Type: Spontaneous
  Country: US (occurrence: None)
  Receive Date: 20130903
  Receipt Date: 20130903
  Transmission Date: 20140515
  Serious: Yes (Hospitalization)
  Sender: FDA-Public Use
  Company Number: 96952

PATIENT
  Age: 69 Year
  Sex: Male

DRUGS (1)
  1. CISPLATIN [Suspect]
     Indication: SQUAMOUS CELL CARCINOMA OF HEAD AND NECK
     Dates: start: 20091124, end: 20091229

REACTIONS (20)
  - Decreased appetite [None]
  - Dehydration [None]
  - Oral discomfort [None]
  - Stomatitis [None]
  - Oral pain [None]
  - Oedema mouth [None]
  - Dysphagia [None]
  - Chromaturia [None]
  - Nausea [None]
  - Pharyngeal inflammation [None]
  - Hypophagia [None]
  - Malnutrition [None]
  - Starvation [None]
  - Ketosis [None]
  - Inadequate analgesia [None]
  - Urine odour abnormal [None]
  - Fatigue [None]
  - Presyncope [None]
  - Oesophageal stenosis [None]
  - Radiation injury [None]
